FAERS Safety Report 9387444 (Version 1)
Quarter: 2013Q3

REPORT INFORMATION
  Report Type: Spontaneous
  Country: US (occurrence: US)
  Receive Date: 20130708
  Receipt Date: 20130708
  Transmission Date: 20140515
  Serious: No
  Sender: FDA-Public Use
  Company Number: US-US-EMD SERONO, INC.-7098173

PATIENT
  Sex: Female

DRUGS (3)
  1. REBIF [Suspect]
     Indication: MULTIPLE SCLEROSIS
     Route: 058
     Dates: start: 2004, end: 2008
  2. REBIF [Suspect]
     Route: 058
     Dates: start: 20101015, end: 201304
  3. NAPROXEN [Concomitant]
     Indication: PREMEDICATION

REACTIONS (6)
  - Oedema peripheral [Recovered/Resolved]
  - Gastrointestinal pain [Recovered/Resolved]
  - Uterine pain [Recovered/Resolved]
  - Adnexa uteri pain [Recovered/Resolved]
  - Weight increased [Recovered/Resolved]
  - Flank pain [Recovered/Resolved]
